FAERS Safety Report 6274742-X (Version None)
Quarter: 2009Q3

REPORT INFORMATION
  Report Type: 
  Country: None (occurrence: None)
  Receive Date: 20090717
  Receipt Date: 20090703
  Transmission Date: 20100115
  Serious: Yes (Hospitalization)
  Sender: FDA-Public Use
  Company Number: 2009229958

PATIENT
  Age: 76 Year
  Sex: Male

DRUGS (3)
  1. DALTEPARIN SODIUM [Suspect]
     Dates: start: 20090319
  2. CARBOPLATIN [Suspect]
     Dosage: 640 MG, INTRAVENOUS
     Route: 042
     Dates: start: 20090319
  3. ETOPOSIDE [Suspect]
     Dosage: 240 MG, INTRAVENOUS
     Route: 042
     Dates: start: 20090319

REACTIONS (2)
  - NEUTROPENIC SEPSIS [None]
  - PLATELET COUNT DECREASED [None]
